FAERS Safety Report 11566381 (Version 1)
Quarter: 2015Q3

REPORT INFORMATION
  Report Type: Spontaneous
  Country: US (occurrence: US)
  Receive Date: 20150916
  Receipt Date: 20150916
  Transmission Date: 20151125
  Serious: No
  Sender: FDA-Public Use
  Company Number: US-ELI_LILLY_AND_COMPANY-US200906000525

PATIENT
  Age: 80 Year
  Sex: Female

DRUGS (2)
  1. FORTEO [Suspect]
     Active Substance: TERIPARATIDE
     Indication: OSTEOPOROSIS
     Dosage: 20 UG, DAILY (1/D)
     Dates: start: 20090528
  2. FORTEO [Suspect]
     Active Substance: TERIPARATIDE
     Dates: start: 20090621

REACTIONS (7)
  - Nausea [Unknown]
  - Feeling hot [Recovered/Resolved]
  - Heart rate increased [Unknown]
  - Injection site erythema [Unknown]
  - Malaise [Unknown]
  - Sleep disorder [Recovered/Resolved]
  - Dizziness [Not Recovered/Not Resolved]

NARRATIVE: CASE EVENT DATE: 20090531
